FAERS Safety Report 8343184-5 (Version None)
Quarter: 2012Q2

REPORT INFORMATION
  Report Type: 
  Country: None (occurrence: None)
  Receive Date: 20120508
  Receipt Date: 20120430
  Transmission Date: 20120825
  Serious: Yes (Hospitalization, Other)
  Sender: FDA-Public Use
  Company Number: US-BAYER-2012-003784

PATIENT
  Age: 20 Year
  Sex: Female
  Weight: 58.957 kg

DRUGS (2)
  1. YAZ [Suspect]
     Dosage: UNK
     Dates: start: 20050101, end: 20080101
  2. ALBUTEROL [Concomitant]
     Dosage: UNK
     Dates: start: 20040101

REACTIONS (6)
  - PSYCHOLOGICAL TRAUMA [None]
  - ANXIETY [None]
  - EMOTIONAL DISTRESS [None]
  - PAIN [None]
  - GALLBLADDER DISORDER [None]
  - CHOLECYSTITIS CHRONIC [None]
